FAERS Safety Report 9494859 (Version 1)
Quarter: 2013Q3

REPORT INFORMATION
  Report Type: Spontaneous
  Country: DE (occurrence: DE)
  Receive Date: 20130903
  Receipt Date: 20130903
  Transmission Date: 20140515
  Serious: Yes (Hospitalization)
  Sender: FDA-Public Use
  Company Number: DE-SANOFI-AVENTIS-2013SA086367

PATIENT
  Age: 54 Year
  Sex: Female

DRUGS (8)
  1. OXALIPLATIN [Suspect]
     Indication: COLORECTAL CANCER METASTATIC
     Dosage: 4 CYCLES
     Route: 065
     Dates: start: 201202, end: 201203
  2. OXALIPLATIN [Suspect]
     Indication: COLORECTAL CANCER METASTATIC
     Dosage: INFUSION
     Route: 065
     Dates: start: 20120326
  3. FLUOROURACIL [Concomitant]
     Indication: COLORECTAL CANCER METASTATIC
     Dates: start: 201202, end: 201203
  4. FLUOROURACIL [Concomitant]
     Indication: COLORECTAL CANCER METASTATIC
     Dates: start: 20120326
  5. FLUOROURACIL [Concomitant]
     Indication: COLORECTAL CANCER METASTATIC
  6. FOLINIC ACID [Concomitant]
     Indication: COLORECTAL CANCER METASTATIC
     Dates: start: 201202, end: 201203
  7. FOLINIC ACID [Concomitant]
     Indication: COLORECTAL CANCER METASTATIC
     Dates: start: 20120326
  8. FOLINIC ACID [Concomitant]
     Indication: COLORECTAL CANCER METASTATIC

REACTIONS (12)
  - Multi-organ failure [Recovering/Resolving]
  - C-reactive protein increased [Recovering/Resolving]
  - Pyrexia [Recovering/Resolving]
  - Chills [Recovering/Resolving]
  - Blood bilirubin increased [Recovering/Resolving]
  - Back pain [Recovering/Resolving]
  - Autoimmune haemolytic anaemia [Recovering/Resolving]
  - Coombs test positive [Recovering/Resolving]
  - Platelet count decreased [Recovering/Resolving]
  - Antithrombin III decreased [Recovering/Resolving]
  - Disseminated intravascular coagulation [Recovering/Resolving]
  - Fibrin D dimer increased [Recovering/Resolving]
